FAERS Safety Report 4450705-1 (Version None)
Quarter: 2004Q3

REPORT INFORMATION
  Report Type: 
  Country: None (occurrence: None)
  Receive Date: 20040914
  Receipt Date: 20040914
  Transmission Date: 20050211
  Serious: Yes (Death)
  Sender: FDA-Public Use
  Company Number: None

PATIENT
  Weight: 146 kg

DRUGS (1)
  1. ENOXAPARIN SODIUM [Suspect]
     Dosage: 100 MG BID SUBCUTANEOUS
     Route: 058

REACTIONS (1)
  - RETROPERITONEAL HAEMORRHAGE [None]
